FAERS Safety Report 22166827 (Version 1)
Quarter: 2023Q2

REPORT INFORMATION
  Report Type: Spontaneous
  Country: US (occurrence: None)
  Receive Date: 20230401
  Receipt Date: 20230401
  Transmission Date: 20230722
  Serious: Yes (Life-Threatening, Disabling)
  Sender: FDA-Public Use
  Company Number: None

PATIENT
  Age: 85 Year
  Sex: Male
  Weight: 78.75 kg

DRUGS (6)
  1. XARELTO [Suspect]
     Active Substance: RIVAROXABAN
     Indication: Deep vein thrombosis
     Dosage: OTHER QUANTITY : 30 TABLET(S);?FREQUENCY : TWICE A DAY;?
     Route: 048
     Dates: start: 20230318, end: 20230323
  2. ELIQUIS [Concomitant]
     Active Substance: APIXABAN
     Dosage: OTHER QUANTITY : OTHER QUANTITY : 1 TABLET(S);?FREQUENCY : TWICE A DAY;?;?OTHER QUANTITY : 1 TABLET(
     Route: 048
     Dates: start: 20230325
  3. LISINOPRIL [Concomitant]
     Active Substance: LISINOPRIL
  4. SIMVASTATION [Concomitant]
  5. APIXABAN [Concomitant]
     Active Substance: APIXABAN
  6. TAMSULOSIN [Concomitant]
     Active Substance: TAMSULOSIN

REACTIONS (1)
  - Blood urine [None]

NARRATIVE: CASE EVENT DATE: 20230301
